FAERS Safety Report 7318676-8 (Version None)
Quarter: 2011Q1

REPORT INFORMATION
  Report Type: 
  Country: None (occurrence: None)
  Receive Date: 20110223
  Receipt Date: 20110223
  Transmission Date: 20110831
  Serious: Yes (Life-Threatening, Hospitalization, Disabling)
  Sender: FDA-Public Use
  Company Number: None

PATIENT
  Sex: Male
  Weight: 117.9352 kg

DRUGS (2)
  1. AZITHROMYCIN [Suspect]
     Indication: ATRIAL FIBRILLATION
     Dosage: 500MG/250MG PER DAY PO
     Route: 048
     Dates: start: 20110212, end: 20110215
  2. COUMADIN [Suspect]
     Indication: BRONCHITIS
     Dosage: 15MG PER DAY PO
     Route: 048
     Dates: start: 20051001, end: 20110215

REACTIONS (5)
  - BRONCHITIS [None]
  - COUGH [None]
  - HAEMATOMA [None]
  - DRUG INTERACTION [None]
  - VASCULAR RUPTURE [None]
